FAERS Safety Report 8441459-2 (Version None)
Quarter: 2012Q2

REPORT INFORMATION
  Report Type: 
  Country: None (occurrence: None)
  Receive Date: 20120615
  Receipt Date: 20120608
  Transmission Date: 20120825
  Serious: Yes (Hospitalization)
  Sender: FDA-Public Use
  Company Number: FR-UCBSA-059358

PATIENT
  Age: 32 Year
  Sex: Female

DRUGS (4)
  1. KEPPRA [Suspect]
     Route: 048
  2. TEGRETOL [Suspect]
     Route: 048
  3. NITRAZEPAM [Suspect]
     Dosage: DAILY DOSE:25 MG
     Route: 048
  4. TOPIRAMATE [Suspect]
     Route: 048

REACTIONS (4)
  - MATERNAL EXPOSURE DURING PREGNANCY [None]
  - MYOCLONIC EPILEPSY [None]
  - CAESAREAN SECTION [None]
  - PREMATURE DELIVERY [None]
